FAERS Safety Report 19099145 (Version 3)
Quarter: 2021Q2

REPORT INFORMATION
  Report Type: Spontaneous
  Country: AR (occurrence: AR)
  Receive Date: 20210406
  Receipt Date: 20210621
  Transmission Date: 20210717
  Serious: Yes (Hospitalization)
  Sender: FDA-Public Use
  Company Number: NVSC2021AR077147

PATIENT
  Age: 72 Year
  Sex: Male

DRUGS (2)
  1. ULTIBRO BREEZHALER [Suspect]
     Active Substance: GLYCOPYRRONIUM\INDACATEROL
     Dosage: 0.5 MG
     Route: 065
     Dates: start: 2017
  2. ULTIBRO BREEZHALER [Suspect]
     Active Substance: GLYCOPYRRONIUM\INDACATEROL
     Indication: CHRONIC OBSTRUCTIVE PULMONARY DISEASE
     Dosage: 1 DF (0.11/0.05 MG, 30 CAPSULES), QD, STARTED 3 YEARS AGO APPROXIMATELY
     Route: 065

REACTIONS (10)
  - Fistula [Unknown]
  - Arthropathy [Unknown]
  - Overweight [Unknown]
  - Neoplasm malignant [Unknown]
  - Hypoaesthesia [Unknown]
  - Osteoarthritis [Unknown]
  - Gait disturbance [Unknown]
  - Cataract [Unknown]
  - Pain [Unknown]
  - Arthralgia [Unknown]

NARRATIVE: CASE EVENT DATE: 2020
